FAERS Safety Report 16637476 (Version 1)
Quarter: 2019Q3

REPORT INFORMATION
  Report Type: Spontaneous
  Country: US (occurrence: US)
  Receive Date: 20190726
  Receipt Date: 20190726
  Transmission Date: 20191004
  Serious: No
  Sender: FDA-Public Use
  Company Number: US-PERRIGO-18US010462

PATIENT
  Age: 35 Year
  Sex: Male
  Weight: 68.03 kg

DRUGS (3)
  1. MINOXIDIL. [Suspect]
     Active Substance: MINOXIDIL
     Indication: ALOPECIA
     Dosage: .5 ML, BID
     Route: 061
     Dates: start: 201807, end: 20180928
  2. ZYRTEC [Suspect]
     Active Substance: CETIRIZINE HYDROCHLORIDE
     Indication: HYPERSENSITIVITY
     Dosage: 1 TABLET, QD
     Route: 048
     Dates: start: 201807, end: 20180926
  3. LISINOPRIL. [Concomitant]
     Active Substance: LISINOPRIL
     Indication: HYPERTENSION
     Dosage: UNK
     Route: 065
     Dates: start: 20180710

REACTIONS (8)
  - Product administered at inappropriate site [Recovered/Resolved]
  - Pruritus [Recovered/Resolved]
  - Wrong technique in product usage process [Recovered/Resolved]
  - Urticaria [Recovering/Resolving]
  - Skin exfoliation [Not Recovered/Not Resolved]
  - Application site pruritus [Not Recovered/Not Resolved]
  - Underdose [Recovered/Resolved]
  - Erythema [Recovered/Resolved]

NARRATIVE: CASE EVENT DATE: 201807
